FAERS Safety Report 8919819 (Version 1)
Quarter: 2012Q4

REPORT INFORMATION
  Report Type: 
  Country: US (occurrence: US)
  Receive Date: 20121121
  Receipt Date: 20121121
  Transmission Date: 20130627
  Serious: Yes (Other)
  Sender: FDA-Public Use
  Company Number: US-BAYER-2012-120844

PATIENT
  Sex: Female

DRUGS (1)
  1. MIRENA [Suspect]
     Dosage: 20 mcg/24hr, CONT
     Route: 015
     Dates: start: 2007

REACTIONS (11)
  - Abdominal mass [Not Recovered/Not Resolved]
  - Pregnancy with contraceptive device [None]
  - Breast tenderness [None]
  - Galactorrhoea [None]
  - Abdominal discomfort [None]
  - Abortion spontaneous [None]
  - Breast mass [Not Recovered/Not Resolved]
  - Ovarian enlargement [Not Recovered/Not Resolved]
  - Adnexa uteri pain [Not Recovered/Not Resolved]
  - Dyspareunia [Not Recovered/Not Resolved]
  - Device misuse [None]
